FAERS Safety Report 7573210-2 (Version None)
Quarter: 2011Q2

REPORT INFORMATION
  Report Type: 
  Country: None (occurrence: None)
  Receive Date: 20110627
  Receipt Date: 20110621
  Transmission Date: 20111010
  Serious: Yes (Other)
  Sender: FDA-Public Use
  Company Number: US-PFIZER INC-2011138452

PATIENT
  Sex: Female

DRUGS (1)
  1. CHANTIX [Suspect]
     Dosage: UNK
     Dates: start: 20070101

REACTIONS (9)
  - ANXIETY [None]
  - LOSS OF CONSCIOUSNESS [None]
  - SUICIDAL IDEATION [None]
  - MENTAL DISORDER [None]
  - IRRITABILITY [None]
  - LOSS OF LIBIDO [None]
  - MULTIPLE INJURIES [None]
  - DEPRESSION [None]
  - NERVOUS SYSTEM DISORDER [None]
